FAERS Safety Report 25259146 (Version 1)
Quarter: 2025Q2

REPORT INFORMATION
  Report Type: Report from Study
  Country: US (occurrence: US)
  Receive Date: 20250501
  Receipt Date: 20250501
  Transmission Date: 20250716
  Serious: Yes (Other)
  Sender: ABBVIE
  Company Number: US-ABBVIE-6261302

PATIENT
  Age: 75 Year
  Sex: Male

DRUGS (1)
  1. VENCLEXTA [Suspect]
     Active Substance: VENETOCLAX
     Indication: Head and neck cancer
     Dosage: STRENGTH: 100 MG, TAKE FOUR TABLETS BY MOUTH DAILY
     Route: 048

REACTIONS (1)
  - Disease recurrence [Unknown]
